FAERS Safety Report 6762771-9 (Version None)
Quarter: 2010Q2

REPORT INFORMATION
  Report Type: 
  Country: None (occurrence: None)
  Receive Date: 20100609
  Receipt Date: 20100601
  Transmission Date: 20101027
  Serious: Yes (Hospitalization, Other)
  Sender: FDA-Public Use
  Company Number: B0645360A

PATIENT
  Sex: Male

DRUGS (2)
  1. VALTREX [Suspect]
     Indication: VARICELLA
     Dosage: 3000MG PER DAY
     Route: 048
     Dates: start: 20100330, end: 20100401
  2. VIDARABINE [Concomitant]
     Dosage: 600MG PER DAY
     Dates: start: 20100331

REACTIONS (9)
  - BLISTER [None]
  - BLOOD CREATININE INCREASED [None]
  - DEHYDRATION [None]
  - DISORIENTATION [None]
  - ENCEPHALOPATHY [None]
  - GLOMERULAR FILTRATION RATE DECREASED [None]
  - HYPOPHAGIA [None]
  - INCOHERENT [None]
  - RENAL IMPAIRMENT [None]
